FAERS Safety Report 19512974 (Version 1)
Quarter: 2021Q3

REPORT INFORMATION
  Report Type: Spontaneous
  Country: US (occurrence: US)
  Receive Date: 20210709
  Receipt Date: 20210709
  Transmission Date: 20211014
  Serious: Yes (Other)
  Sender: FDA-Public Use
  Company Number: US-GLAXOSMITHKLINE-US2021GSK150163

PATIENT
  Sex: Male

DRUGS (5)
  1. ZANTAC [Suspect]
     Active Substance: RANITIDINE HYDROCHLORIDE
     Dosage: UNKNOWN AT THIS TIME BOTH
     Route: 065
     Dates: start: 201201, end: 201905
  2. ZANTAC [Suspect]
     Active Substance: RANITIDINE HYDROCHLORIDE
     Dosage: UNKNOWN AT THIS TIME BOTH
     Route: 065
     Dates: start: 201201, end: 201905
  3. ZANTAC [Suspect]
     Active Substance: RANITIDINE HYDROCHLORIDE
     Dosage: UNKNOWN AT THIS TIME BOTH
     Route: 065
     Dates: start: 201201, end: 201905
  4. RANITIDINE CAPSULE [Suspect]
     Active Substance: RANITIDINE
     Dosage: UNKNOWN AT THIS TIME OVER THE COUNTER
     Route: 065
     Dates: start: 201201, end: 201905
  5. RANITIDINE. [Suspect]
     Active Substance: RANITIDINE
     Dosage: UNKNOWN AT THIS TIME OVER THE COUNTER
     Route: 065
     Dates: start: 201201, end: 201905

REACTIONS (1)
  - Gastrointestinal carcinoma [Unknown]
